FAERS Safety Report 8404346-1 (Version None)
Quarter: 2012Q2

REPORT INFORMATION
  Report Type: 
  Country: None (occurrence: None)
  Receive Date: 20120601
  Receipt Date: 20111029
  Transmission Date: 20120825
  Serious: No
  Sender: FDA-Public Use
  Company Number: US-NOVEN-11US003526

PATIENT
  Sex: Male
  Weight: 40.816 kg

DRUGS (1)
  1. DAYTRANA [Suspect]
     Indication: ATTENTION DEFICIT/HYPERACTIVITY DISORDER
     Dosage: 15 MG, UNK
     Route: 062
     Dates: start: 20110801

REACTIONS (5)
  - PSYCHOMOTOR HYPERACTIVITY [None]
  - INSOMNIA [None]
  - INCORRECT DRUG ADMINISTRATION DURATION [None]
  - IMPULSIVE BEHAVIOUR [None]
  - AGITATION [None]
